FAERS Safety Report 14970526 (Version 1)
Quarter: 2018Q2

REPORT INFORMATION
  Report Type: Spontaneous
  Country: US (occurrence: US)
  Receive Date: 20180604
  Receipt Date: 20180604
  Transmission Date: 20180711
  Serious: No
  Sender: FDA-Public Use
  Company Number: US-GE HEALTHCARE LIFE SCIENCES-2018CSU001499

PATIENT
  Age: 27 Year
  Sex: Male
  Weight: 54.42 kg

DRUGS (3)
  1. DECADRON [Concomitant]
     Active Substance: DEXAMETHASONE
     Indication: NAUSEA
  2. ZOFRAN [Concomitant]
     Active Substance: ONDANSETRON HYDROCHLORIDE
     Indication: NAUSEA
  3. OMNIPAQUE [Suspect]
     Active Substance: IOHEXOL
     Indication: EWING^S SARCOMA
     Dosage: 110 ML, SINGLE
     Route: 042
     Dates: start: 20180417, end: 20180417

REACTIONS (1)
  - Sneezing [Recovered/Resolved]

NARRATIVE: CASE EVENT DATE: 20180417
